FAERS Safety Report 9933495 (Version 2)
Quarter: 2014Q1

REPORT INFORMATION
  Report Type: Report from Study
  Country: US (occurrence: US)
  Receive Date: 20140228
  Receipt Date: 20140228
  Transmission Date: 20141002
  Serious: No
  Sender: FDA-Public Use
  Company Number: US-MYLANLABS-2013S1010361

PATIENT
  Age: 18 Year
  Sex: Male

DRUGS (4)
  1. AMNESTEEM CAPSULES [Suspect]
     Indication: ACNE
     Route: 048
     Dates: start: 20130118, end: 201303
  2. AMNESTEEM CAPSULES [Suspect]
     Indication: ACNE
     Route: 048
     Dates: start: 201303, end: 20130509
  3. MVI [Concomitant]
     Route: 048
  4. ZYRTEC [Concomitant]
     Route: 048

REACTIONS (3)
  - Dry skin [Not Recovered/Not Resolved]
  - Lip dry [Not Recovered/Not Resolved]
  - Treatment noncompliance [Not Recovered/Not Resolved]
